FAERS Safety Report 10223579 (Version 3)
Quarter: 2014Q3

REPORT INFORMATION
  Report Type: Spontaneous
  Country: IT (occurrence: None)
  Receive Date: 20140605
  Receipt Date: 20140808
  Transmission Date: 20150326
  Serious: Yes (Hospitalization, Other)
  Sender: FDA-Public Use
  Company Number: AUR-APL-2014-06111

PATIENT
  Age: 24 Year
  Sex: Female

DRUGS (2)
  1. AMOXICILLIN (AMOXICILLIN) UNKNOWN [Suspect]
     Active Substance: AMOXICILLIN
     Indication: PRODUCT USED FOR UNKNOWN INDICATION
     Route: 048
     Dates: start: 20140420, end: 20140427
  2. KETOPROFENE /00032001/ (KEBUZONE) [Suspect]
     Active Substance: KETOPROFEN
     Indication: PRODUCT USED FOR UNKNOWN INDICATION
     Route: 048
     Dates: start: 20140420, end: 20140427

REACTIONS (5)
  - Drug abuse [None]
  - Toxic epidermal necrolysis [None]
  - Oral mucosal erythema [None]
  - Systemic sclerosis [None]
  - Overlap syndrome [None]

NARRATIVE: CASE EVENT DATE: 20140504
